FAERS Safety Report 13936348 (Version 1)
Quarter: 2017Q3

REPORT INFORMATION
  Report Type: Spontaneous
  Country: US (occurrence: US)
  Receive Date: 20170903
  Receipt Date: 20170903
  Transmission Date: 20171127
  Serious: Yes (Life-Threatening, Hospitalization, Disabling, Other)
  Sender: FDA-Public Use
  Company Number: None

PATIENT
  Age: 73 Year
  Sex: Male
  Weight: 85.5 kg

DRUGS (2)
  1. ATORVASTIN [Suspect]
     Active Substance: ATORVASTATIN
     Indication: BLOOD CHOLESTEROL INCREASED
     Dosage: QUANTITY:90 TABLET(S); AT BEDTIME ORAL?
     Route: 048
     Dates: start: 20170518, end: 20170816
  2. BABY ASPIRIN [Concomitant]
     Active Substance: ASPIRIN

REACTIONS (3)
  - Rhabdomyolysis [None]
  - Hepatic failure [None]
  - Renal failure [None]

NARRATIVE: CASE EVENT DATE: 20170816
